FAERS Safety Report 4726444-6 (Version None)
Quarter: 2005Q3

REPORT INFORMATION
  Report Type: 
  Country: None (occurrence: None)
  Receive Date: 20050726
  Receipt Date: 20041221
  Transmission Date: 20060218
  Serious: Yes (Hospitalization)
  Sender: FDA-Public Use
  Company Number: REM_00079_2004

PATIENT
  Age: 48 Year
  Sex: Female
  Weight: 64 kg

DRUGS (14)
  1. REMODULIN [Suspect]
     Indication: PULMONARY HYPERTENSION
     Dosage: 19.64 NG/KG/MIN CONTINUOUS SC
     Route: 058
     Dates: start: 20041203, end: 20041215
  2. PLACEBO [Suspect]
     Dates: start: 20041203, end: 20041215
  3. NORVASC [Concomitant]
  4. PREVACID [Concomitant]
  5. COUMADIN [Concomitant]
  6. HYDROCHLOROTHIAZIDE [Concomitant]
  7. DIGOXIN [Concomitant]
  8. IMODIUM [Concomitant]
  9. OXYGEN [Concomitant]
  10. FLONASE [Concomitant]
  11. CLARITIN [Concomitant]
  12. NEURONTIN [Concomitant]
  13. LIDOCAINE [Concomitant]
  14. OXYCODONE [Concomitant]

REACTIONS (1)
  - PULMONARY HYPERTENSION [None]
